FAERS Safety Report 11258317 (Version 1)
Quarter: 2015Q3

REPORT INFORMATION
  Report Type: Spontaneous
  Country: GB (occurrence: GB)
  Receive Date: 20150710
  Receipt Date: 20150710
  Transmission Date: 20151125
  Serious: Yes (Other)
  Sender: FDA-Public Use
  Company Number: GB-TEVA-576415ACC

PATIENT
  Age: 33 Year
  Sex: Female

DRUGS (4)
  1. ACIDEX [Suspect]
     Active Substance: CALCIUM CARBONATE\SODIUM ALGINATE\SODIUM BICARBONATE
     Indication: HYPEREMESIS GRAVIDARUM
     Dosage: 5-10ML DAILY
     Route: 048
     Dates: start: 20140925
  2. METOCLOPRAMIDE. [Suspect]
     Active Substance: METOCLOPRAMIDE
     Indication: HYPEREMESIS GRAVIDARUM
     Dosage: 10 MILLIGRAM DAILY;
     Route: 048
     Dates: start: 20141013
  3. AVOMINE [Suspect]
     Active Substance: PROMETHAZINE TEOCLATE
     Indication: HYPEREMESIS GRAVIDARUM
     Dosage: 25 MILLIGRAM DAILY;
     Route: 048
     Dates: start: 20140916
  4. CYCLIZINE [Suspect]
     Active Substance: CYCLIZINE
     Indication: HYPEREMESIS GRAVIDARUM
     Dosage: DOSE AND FREQUENCY UNKNOWN
     Route: 065
     Dates: start: 20141013

REACTIONS (4)
  - Premature baby [Unknown]
  - Pre-eclampsia [Unknown]
  - Caesarean section [Unknown]
  - Exposure during pregnancy [Unknown]
